FAERS Safety Report 5524605-X (Version None)
Quarter: 2007Q4

REPORT INFORMATION
  Report Type: 
  Country: None (occurrence: None)
  Receive Date: 20071123
  Receipt Date: 20071119
  Transmission Date: 20080405
  Serious: Yes (Other)
  Sender: FDA-Public Use
  Company Number: JP-BAYER-200716855GDS

PATIENT
  Age: 51 Year
  Sex: Male

DRUGS (2)
  1. ASPIRIN [Suspect]
     Indication: DRUG USE FOR UNKNOWN INDICATION
     Route: 065
  2. CILOSTAZOL [Suspect]
     Indication: DRUG USE FOR UNKNOWN INDICATION
     Route: 065

REACTIONS (2)
  - ACUTE MYOCARDIAL INFARCTION [None]
  - PULMONARY HAEMORRHAGE [None]
